FAERS Safety Report 10368734 (Version 3)
Quarter: 2014Q3

REPORT INFORMATION
  Report Type: Spontaneous
  Country: JP (occurrence: JP)
  Receive Date: 20140807
  Receipt Date: 20140819
  Transmission Date: 20150326
  Serious: Yes (Life-Threatening, Hospitalization)
  Sender: FDA-Public Use
  Company Number: PHHY2012JP024963

PATIENT
  Sex: Female

DRUGS (27)
  1. MUCOSTA [Concomitant]
     Active Substance: REBAMIPIDE
     Dosage: 200 MG, UNK
     Route: 048
     Dates: start: 20120125
  2. CLOZARIL [Suspect]
     Active Substance: CLOZAPINE
     Dosage: 150 MG, DAILY
     Route: 048
     Dates: start: 20120208, end: 20120210
  3. MAJORPIN [Concomitant]
     Active Substance: ZOTEPINE
     Dosage: 100 MG, UNK
     Route: 048
  4. WYPAX [Concomitant]
     Active Substance: LORAZEPAM
     Route: 048
     Dates: start: 20120125
  5. CLOZARIL [Suspect]
     Active Substance: CLOZAPINE
     Dosage: 50 MG, DAILY
     Route: 048
     Dates: start: 20120129, end: 20120131
  6. MAJORPIN [Concomitant]
     Active Substance: ZOTEPINE
     Dosage: 150 MG, UNK
     Route: 048
  7. SENNOSIDE [Concomitant]
     Active Substance: SENNOSIDES
     Route: 048
     Dates: start: 20120203
  8. PANTOSIN [Concomitant]
     Active Substance: PANTETHINE
     Dosage: 600 MG, UNK
     Route: 048
     Dates: start: 20120227
  9. CLOZARIL [Suspect]
     Active Substance: CLOZAPINE
     Dosage: 175 MG, DAILY
     Route: 048
     Dates: start: 20120211, end: 20120213
  10. VOLTAREN [Concomitant]
     Active Substance: DICLOFENAC SODIUM
     Dosage: 50 MG, UNK
     Route: 048
     Dates: start: 20120125
  11. MAJORPIN [Concomitant]
     Active Substance: ZOTEPINE
     Dosage: 50 MG, UNK
     Route: 048
     Dates: end: 20120215
  12. SELENICA-R [Concomitant]
     Active Substance: SELENIUM
     Dosage: 800 MG, UNK
     Route: 048
     Dates: start: 20120125
  13. CLOZARIL [Suspect]
     Active Substance: CLOZAPINE
     Dosage: 25 MG, DAILY
     Route: 048
     Dates: start: 20120126, end: 20120128
  14. CLOZARIL [Suspect]
     Active Substance: CLOZAPINE
     Dosage: 75 MG, DAILY
     Route: 048
     Dates: start: 20120201, end: 20120202
  15. CLOZARIL [Suspect]
     Active Substance: CLOZAPINE
     Dosage: 125 MG, DAILY
     Route: 048
     Dates: start: 20120205, end: 20120207
  16. CLOZARIL [Suspect]
     Active Substance: CLOZAPINE
     Dosage: 400 MG, DAILY
     Route: 048
     Dates: start: 20120224, end: 20120228
  17. MAJORPIN [Concomitant]
     Active Substance: ZOTEPINE
     Dosage: 300 MG, UNK
     Route: 048
     Dates: start: 20120125
  18. RISPERDAL [Concomitant]
     Active Substance: RISPERIDONE
     Dosage: 6 MG, UNK
     Route: 048
     Dates: start: 20120125, end: 20120208
  19. POLYFUL [Concomitant]
     Active Substance: CALCIUM POLYCARBOPHIL
     Dosage: 1000 MG, UNK
     Route: 048
     Dates: start: 20120125
  20. CLOZARIL [Suspect]
     Active Substance: CLOZAPINE
     Dosage: 100 MG, DAILY
     Route: 048
     Dates: start: 20120203, end: 20120204
  21. CLOZARIL [Suspect]
     Active Substance: CLOZAPINE
     Dosage: 200 MG, DAILY
     Route: 048
     Dates: start: 20120214, end: 20120215
  22. CLOZARIL [Suspect]
     Active Substance: CLOZAPINE
     Dosage: 250 MG, DAILY
     Route: 048
     Dates: start: 20120216, end: 20120217
  23. CLOZARIL [Suspect]
     Active Substance: CLOZAPINE
     Dosage: 300 MG, DAILY
     Route: 048
     Dates: start: 20120218, end: 20120219
  24. CLOZARIL [Suspect]
     Active Substance: CLOZAPINE
     Dosage: 350 MG, DAILY
     Route: 048
     Dates: start: 20120220, end: 20120223
  25. CLOZARIL [Suspect]
     Active Substance: CLOZAPINE
     Dosage: 150 MG, DAILY
     Route: 048
     Dates: start: 20120319, end: 20120319
  26. CLOZARIL [Suspect]
     Active Substance: CLOZAPINE
     Indication: SCHIZOPHRENIA, PARANOID TYPE
     Dosage: 12.5 MG/ DAILY
     Route: 048
     Dates: start: 20120125, end: 20120125
  27. CLOZARIL [Suspect]
     Active Substance: CLOZAPINE
     Dosage: 450 MG,DAILY
     Route: 048
     Dates: start: 20120229, end: 20120318

REACTIONS (6)
  - Blood pressure systolic decreased [Unknown]
  - Urinary tract infection [Recovered/Resolved]
  - Agranulocytosis [Recovered/Resolved]
  - Body temperature increased [Unknown]
  - Pyelonephritis [Unknown]
  - Blood pressure diastolic decreased [Unknown]

NARRATIVE: CASE EVENT DATE: 20120320
